FAERS Safety Report 9381693 (Version 1)
Quarter: 2013Q3

REPORT INFORMATION
  Report Type: Report from Study
  Country: US (occurrence: US)
  Receive Date: 20130703
  Receipt Date: 20130703
  Transmission Date: 20140515
  Serious: Yes (Other)
  Sender: FDA-Public Use
  Company Number: US-ASTELLAS-2013US006878

PATIENT
  Age: 70 Year
  Sex: Male

DRUGS (2)
  1. ERLOTINIB TABLET [Suspect]
     Indication: PRODUCT USED FOR UNKNOWN INDICATION
     Dosage: UNK
     Route: 065
  2. AVASTIN /01555201/ [Suspect]
     Indication: PRODUCT USED FOR UNKNOWN INDICATION
     Dosage: UNK
     Route: 065

REACTIONS (14)
  - Anaemia [Recovered/Resolved]
  - Diarrhoea haemorrhagic [Unknown]
  - Metastases to lung [Unknown]
  - Metastases to bone [Unknown]
  - Constipation [Unknown]
  - Oedema peripheral [Recovering/Resolving]
  - Asthenia [Unknown]
  - Nausea [Unknown]
  - Dry skin [Unknown]
  - Vomiting [Unknown]
  - Fatigue [Unknown]
  - Musculoskeletal chest pain [Unknown]
  - Dyspnoea [Unknown]
  - Cough [Unknown]
